FAERS Safety Report 20769671 (Version 2)
Quarter: 2022Q4

REPORT INFORMATION
  Report Type: Spontaneous
  Country: IN (occurrence: IN)
  Receive Date: 20220429
  Receipt Date: 20221025
  Transmission Date: 20230113
  Serious: Yes (Other)
  Sender: FDA-Public Use
  Company Number: IN-PFIZER INC-2021077941

PATIENT
  Age: 64 Year
  Sex: Female

DRUGS (8)
  1. PALBOCICLIB [Suspect]
     Active Substance: PALBOCICLIB
     Indication: Breast cancer metastatic
     Dosage: 125 MG, 1X/DAY
     Route: 048
     Dates: start: 20191120
  2. PALBOCICLIB [Suspect]
     Active Substance: PALBOCICLIB
     Indication: Breast cancer metastatic
     Dosage: 125 MG, 1X/DAY
     Route: 048
     Dates: start: 20201229
  3. FEMARA [Concomitant]
     Active Substance: LETROZOLE
     Dosage: UNK, DAILY
  4. FULVESTRANT [Concomitant]
     Active Substance: FULVESTRANT
     Dosage: 1 TABLET DAILY FOR 3 MONTHS
     Route: 058
  5. FULVESTRANT [Concomitant]
     Active Substance: FULVESTRANT
     Dosage: 500 MG, EVERY MONTHLY FOR 6 MONTHS
     Route: 030
  6. B-COMPLEX [VITAMIN B COMPLEX] [Concomitant]
     Dosage: 1 DAILY FOR 3 MONTHS
  7. FOLVITE [FOLIC ACID] [Concomitant]
     Dosage: 1 DAILY FOR 3 MONTHS
  8. NEUKINE [Concomitant]
     Dosage: 300 MCG SC (SOS)
     Route: 058

REACTIONS (10)
  - Lung opacity [Unknown]
  - Neoplasm progression [Unknown]
  - Haemoglobin decreased [Unknown]
  - White blood cell count decreased [Unknown]
  - Platelet count decreased [Unknown]
  - COVID-19 [Unknown]
  - Blood thyroid stimulating hormone increased [Unknown]
  - Dyspnoea [Unknown]
  - Lymph nodes scan abnormal [Unknown]
  - Breast fibrosis [Unknown]

NARRATIVE: CASE EVENT DATE: 20220101
